FAERS Safety Report 11369698 (Version 1)
Quarter: 2015Q3

REPORT INFORMATION
  Report Type: Spontaneous
  Country: JP (occurrence: JP)
  Receive Date: 20150812
  Receipt Date: 20150812
  Transmission Date: 20151125
  Serious: Yes (Other)
  Sender: FDA-Public Use
  Company Number: JP-ROCHE-1619183

PATIENT
  Age: 68 Year
  Sex: Female
  Weight: 53 kg

DRUGS (6)
  1. WARFARIN [Concomitant]
     Active Substance: WARFARIN
     Dosage: DOSAGE IS UNCERTAIN.
     Route: 065
  2. NAUZELIN [Concomitant]
     Active Substance: DOMPERIDONE
     Dosage: DOSAGE IS UNCERTAIN.
     Route: 048
  3. LAXOBERON [Concomitant]
     Active Substance: SODIUM PICOSULFATE
     Dosage: DOSAGE IS UNCERTAIN.
     Route: 065
  4. DOXIL (JAPAN) [Concomitant]
     Indication: OVARIAN CANCER
     Dosage: DOSAGE IS UNCERTAIN.
     Route: 041
  5. KYTRIL [Concomitant]
     Active Substance: GRANISETRON HYDROCHLORIDE
     Dosage: DOSAGE IS UNCERTAIN.
     Route: 065
  6. AVASTIN [Suspect]
     Active Substance: BEVACIZUMAB
     Indication: OVARIAN CANCER
     Route: 041
     Dates: start: 20150722, end: 20150722

REACTIONS (3)
  - Eye pruritus [Recovered/Resolved]
  - Ocular hyperaemia [Recovered/Resolved]
  - Eye swelling [Recovered/Resolved]

NARRATIVE: CASE EVENT DATE: 20150722
